FAERS Safety Report 23849648 (Version 4)
Quarter: 2024Q2

REPORT INFORMATION
  Report Type: Report from Study
  Country: MX (occurrence: MX)
  Receive Date: 20240513
  Receipt Date: 20240627
  Transmission Date: 20240716
  Serious: Yes (Other)
  Sender: FDA-Public Use
  Company Number: MX-002147023-NVSC2024MX076703

PATIENT
  Age: 61 Year
  Sex: Female
  Weight: 78 kg

DRUGS (7)
  1. KISQALI [Suspect]
     Active Substance: RIBOCICLIB
     Indication: Breast cancer
     Dosage: 600 MG, QD (3 TABLETS OF 200 MG)
     Route: 048
     Dates: start: 202312, end: 202402
  2. KISQALI [Suspect]
     Active Substance: RIBOCICLIB
     Indication: Metastases to bone
     Dosage: 600 MG, QD (3 TABLETS OF 200 MG)
     Route: 048
  3. FEMARA [Suspect]
     Active Substance: LETROZOLE
     Indication: Breast cancer
     Dosage: 1 DOSAGE FORM, UNKNOWN (AT NIGHT)
     Route: 048
  4. DESLORATADINE [Concomitant]
     Active Substance: DESLORATADINE
     Indication: Hypersensitivity
     Dosage: 1 DOSAGE FORM (WHEN REQUIRED)
     Route: 048
  5. PROPRANOLOL [Concomitant]
     Active Substance: PROPRANOLOL HYDROCHLORIDE
     Indication: Mitral valve prolapse
     Dosage: 1 DOSAGE FORM, QD
     Route: 048
  6. ZOTROL//LETROZOLE [Concomitant]
     Indication: Breast cancer
     Dosage: 1 DOSAGE FORM (AT NIGHT)
     Route: 048
  7. PALBOCICLIB [Concomitant]
     Active Substance: PALBOCICLIB
     Indication: Product used for unknown indication
     Dosage: UNK
     Route: 065

REACTIONS (28)
  - Colitis [Unknown]
  - Haemoglobin decreased [Not Recovered/Not Resolved]
  - Musculoskeletal discomfort [Unknown]
  - Abdominal discomfort [Recovered/Resolved]
  - Gastritis [Unknown]
  - Fatigue [Unknown]
  - Vomiting [Unknown]
  - Headache [Recovered/Resolved]
  - Constipation [Not Recovered/Not Resolved]
  - Cough [Unknown]
  - Asthenia [Unknown]
  - Hyperhidrosis [Not Recovered/Not Resolved]
  - Hypotension [Unknown]
  - Discomfort [Unknown]
  - Bone disorder [Unknown]
  - Diarrhoea [Not Recovered/Not Resolved]
  - Somnolence [Not Recovered/Not Resolved]
  - Depression [Unknown]
  - Affect lability [Unknown]
  - Feeling abnormal [Not Recovered/Not Resolved]
  - Anxiety [Not Recovered/Not Resolved]
  - Blood creatinine increased [Unknown]
  - Gastric infection [Recovered/Resolved]
  - White blood cell count decreased [Not Recovered/Not Resolved]
  - Platelet count decreased [Not Recovered/Not Resolved]
  - Dehydration [Unknown]
  - Abdominal distension [Not Recovered/Not Resolved]
  - Abdominal pain upper [Not Recovered/Not Resolved]

NARRATIVE: CASE EVENT DATE: 20231201
